FAERS Safety Report 24902192 (Version 2)
Quarter: 2025Q1

REPORT INFORMATION
  Report Type: Report from Study
  Country: US (occurrence: US)
  Receive Date: 20250129
  Receipt Date: 20250212
  Transmission Date: 20250408
  Serious: Yes (Hospitalization)
  Sender: ABBVIE
  Company Number: US-ABBVIE-6106076

PATIENT
  Age: 51 Year
  Sex: Male
  Weight: 104 kg

DRUGS (2)
  1. HUMIRA [Suspect]
     Active Substance: ADALIMUMAB
     Indication: Psoriasis
     Dosage: FORM STRENGTH: 40
     Route: 058
     Dates: start: 20180601
  2. MAGNESIUM OXIDE [Concomitant]
     Active Substance: MAGNESIUM OXIDE
     Indication: Blood magnesium decreased

REACTIONS (6)
  - Seizure [Recovered/Resolved]
  - Dehydration [Recovering/Resolving]
  - Psoriasis [Recovering/Resolving]
  - Electrolyte imbalance [Recovered/Resolved]
  - Blood magnesium decreased [Recovered/Resolved]
  - Skin exfoliation [Recovering/Resolving]

NARRATIVE: CASE EVENT DATE: 20241212
